FAERS Safety Report 6133472-5 (Version None)
Quarter: 2009Q1

REPORT INFORMATION
  Report Type: 
  Country: None (occurrence: None)
  Receive Date: 20090324
  Receipt Date: 20090324
  Transmission Date: 20090719
  Serious: Yes (Hospitalization)
  Sender: FDA-Public Use
  Company Number: None

PATIENT
  Age: 72 Year
  Sex: Male
  Weight: 90.7194 kg

DRUGS (1)
  1. FLOMAX [Suspect]
     Indication: PROSTATE CANCER
     Dosage: 0.4MG ONCE PER DAY PO
     Route: 048
     Dates: start: 20080926, end: 20081225

REACTIONS (1)
  - URTICARIA [None]
